FAERS Safety Report 11674583 (Version 1)
Quarter: 2015Q4

REPORT INFORMATION
  Report Type: Spontaneous
  Country: US (occurrence: US)
  Receive Date: 20151027
  Receipt Date: 20151027
  Transmission Date: 20160304
  Serious: No
  Sender: FDA-Public Use
  Company Number: US-ELI_LILLY_AND_COMPANY-US201005006965

PATIENT
  Sex: Female

DRUGS (5)
  1. FORTEO [Suspect]
     Active Substance: TERIPARATIDE
     Indication: OSTEOPOROSIS
     Dosage: 20 UG, DAILY (1/D)
  2. VENLAFAXINE [Concomitant]
     Active Substance: VENLAFAXINE HYDROCHLORIDE
  3. AVAPRO [Concomitant]
     Active Substance: IRBESARTAN
  4. VITAMINS [Concomitant]
     Active Substance: VITAMINS
  5. HYDROXYCHLOROQUINE [Concomitant]
     Active Substance: HYDROXYCHLOROQUINE
     Dosage: 200 MG, UNK

REACTIONS (6)
  - Upper limb fracture [Unknown]
  - Fall [Unknown]
  - Intentional product use issue [Recovering/Resolving]
  - Medication error [Unknown]
  - Eye injury [Unknown]
  - Eye disorder [Unknown]
